FAERS Safety Report 23037008 (Version 1)
Quarter: 2023Q4

REPORT INFORMATION
  Report Type: Report from Study
  Country: IL (occurrence: IL)
  Receive Date: 20231006
  Receipt Date: 20231006
  Transmission Date: 20240110
  Serious: Yes (Other)
  Sender: FDA-Public Use
  Company Number: IL-JNJFOC-20230917668

PATIENT
  Age: 76 Year
  Sex: Female

DRUGS (17)
  1. SELEXIPAG [Suspect]
     Active Substance: SELEXIPAG
     Indication: Pulmonary arterial hypertension
     Route: 048
     Dates: start: 20230830
  2. SELEXIPAG [Suspect]
     Active Substance: SELEXIPAG
     Route: 048
     Dates: start: 20230907
  3. SELEXIPAG [Suspect]
     Active Substance: SELEXIPAG
     Route: 048
     Dates: start: 20230914
  4. SELEXIPAG [Suspect]
     Active Substance: SELEXIPAG
     Route: 048
     Dates: start: 20230830, end: 20230927
  5. OZEMPIC [Concomitant]
     Active Substance: SEMAGLUTIDE
  6. AMBRISENTAN [Concomitant]
     Active Substance: AMBRISENTAN
  7. ASPIRIN [Concomitant]
     Active Substance: ASPIRIN
  8. SPIRONOLACTONE [Concomitant]
     Active Substance: SPIRONOLACTONE
  9. SIMVASTATIN [Concomitant]
     Active Substance: SIMVASTATIN
  10. COLCHICINE [Concomitant]
     Active Substance: COLCHICINE
  11. FUROSEMIDE [Concomitant]
     Active Substance: FUROSEMIDE
  12. LOPRESSOR [Concomitant]
     Active Substance: METOPROLOL TARTRATE
  13. NOVORAPID [Concomitant]
     Active Substance: INSULIN ASPART
  14. DIULO [Concomitant]
     Active Substance: METOLAZONE
  15. DAPAGLIFLOZIN [Concomitant]
     Active Substance: DAPAGLIFLOZIN
  16. FEBUXOSTAT [Concomitant]
     Active Substance: FEBUXOSTAT
  17. TADALAFIL [Concomitant]
     Active Substance: TADALAFIL

REACTIONS (5)
  - Rectal haemorrhage [Recovered/Resolved]
  - Headache [Recovered/Resolved]
  - Myalgia [Recovered/Resolved]
  - Nausea [Recovered/Resolved]
  - Abdominal pain [Not Recovered/Not Resolved]

NARRATIVE: CASE EVENT DATE: 20230831
